FAERS Safety Report 9448646 (Version 2)
Quarter: 2013Q3

REPORT INFORMATION
  Report Type: Spontaneous
  Country: BR (occurrence: BR)
  Receive Date: 20130808
  Receipt Date: 20130814
  Transmission Date: 20140515
  Serious: Yes (Death, Other)
  Sender: FDA-Public Use
  Company Number: BR-PFIZER INC-2012292394

PATIENT
  Sex: Male
  Weight: 63 kg

DRUGS (1)
  1. SUTENT [Suspect]
     Indication: RENAL CANCER
     Dosage: 50 MG, 1X/DAY
     Route: 048

REACTIONS (4)
  - Death [Fatal]
  - Haemorrhage [Unknown]
  - Haemangioma [Unknown]
  - Fall [Unknown]
